FAERS Safety Report 5675384-7 (Version None)
Quarter: 2008Q2

REPORT INFORMATION
  Report Type: 
  Country: None (occurrence: None)
  Receive Date: 20080307
  Receipt Date: 20070328
  Transmission Date: 20081010
  Serious: Yes (Hospitalization)
  Sender: FDA-Public Use
  Company Number: US200703006128

PATIENT
  Age: 51 Year
  Sex: Female

DRUGS (9)
  1. GEMZAR [Suspect]
     Indication: OVARIAN CANCER
     Dosage: 1900 MG, INTRAVENOUS;1900 MG, INTRAVENOUS; 1900 MG, INTRAVENOUS; 1900 MG, INTRAVENOUS
     Route: 042
     Dates: start: 20060904
  2. GEMZAR [Suspect]
     Indication: OVARIAN CANCER
     Dosage: 1900 MG, INTRAVENOUS;1900 MG, INTRAVENOUS; 1900 MG, INTRAVENOUS; 1900 MG, INTRAVENOUS
     Route: 042
     Dates: start: 20070126
  3. GEMZAR [Suspect]
     Indication: OVARIAN CANCER
     Dosage: 1900 MG, INTRAVENOUS;1900 MG, INTRAVENOUS; 1900 MG, INTRAVENOUS; 1900 MG, INTRAVENOUS
     Route: 042
     Dates: start: 20070216
  4. GEMZAR [Suspect]
     Indication: OVARIAN CANCER
     Dosage: 1900 MG, INTRAVENOUS;1900 MG, INTRAVENOUS; 1900 MG, INTRAVENOUS; 1900 MG, INTRAVENOUS
     Route: 042
     Dates: start: 20070223
  5. GEMZAR [Suspect]
  6. GEMZAR [Suspect]
  7. GEMZAR [Suspect]
  8. GEMZAR [Suspect]
  9. CARBOPLATIN [Concomitant]

REACTIONS (1)
  - HAEMOLYTIC URAEMIC SYNDROME [None]
